FAERS Safety Report 4708977-1 (Version None)
Quarter: 2005Q3

REPORT INFORMATION
  Report Type: 
  Country: None (occurrence: None)
  Receive Date: 20050707
  Receipt Date: 20050628
  Transmission Date: 20060218
  Serious: Yes (Hospitalization)
  Sender: FDA-Public Use
  Company Number: FABR-11155

PATIENT
  Age: 45 Year
  Sex: Female
  Weight: 39 kg

DRUGS (8)
  1. FABRAZYME [Suspect]
     Indication: FABRY'S DISEASE
     Dosage: 50 MG Q2WS IV
     Route: 042
     Dates: start: 20040930
  2. ATENOLOL [Concomitant]
  3. NEXIUM [Concomitant]
  4. ALLEGRA [Concomitant]
  5. XANAX [Concomitant]
  6. TUMS [Concomitant]
  7. ELAVIL [Concomitant]
  8. TRAZODONE HCL [Concomitant]

REACTIONS (1)
  - BACTERAEMIA [None]
